FAERS Safety Report 20811380 (Version 1)
Quarter: 2022Q2

REPORT INFORMATION
  Report Type: Spontaneous
  Country: CN (occurrence: CN)
  Receive Date: 20220510
  Receipt Date: 20220510
  Transmission Date: 20220720
  Serious: Yes (Hospitalization, Other)
  Sender: FDA-Public Use
  Company Number: CN-SA-SAC20220509000140

PATIENT
  Age: 23 Year
  Sex: Male
  Weight: 69 kg

DRUGS (8)
  1. THYMOGLOBULINE [Suspect]
     Active Substance: LAPINE T-LYMPHOCYTE IMMUNE GLOBULIN
     Indication: Transplant rejection
     Dosage: 25 MG, QD
     Route: 041
     Dates: start: 20220318, end: 20220320
  2. TACROLIMUS [Concomitant]
     Active Substance: TACROLIMUS
     Route: 048
  3. BASILIXIMAB [Concomitant]
     Active Substance: BASILIXIMAB
  4. SOLU-MEDROL [Concomitant]
     Active Substance: METHYLPREDNISOLONE SODIUM SUCCINATE
  5. ERYTHROPOIETIN [Concomitant]
     Active Substance: ERYTHROPOIETIN
     Dosage: INJECTION 4000 IU TIW SC
     Route: 058
     Dates: start: 20220319
  6. IRON SUCROSE [Concomitant]
     Active Substance: IRON SUCROSE
     Dosage: 100 MG IV DRIP FOR 10 CONSECUTIVE DAYS
     Route: 041
     Dates: start: 20220319
  7. SHENG XUE NING [Concomitant]
     Dosage: SHENG XUE NING PIAN (TCM, SILKWORM FECES EXTRACT) 0.25 G BID PO
     Route: 048
  8. ROXADUSTAT [Concomitant]
     Active Substance: ROXADUSTAT
     Dates: start: 20220322

REACTIONS (2)
  - Haemoglobin decreased [Recovered/Resolved]
  - Myelosuppression [Unknown]

NARRATIVE: CASE EVENT DATE: 20220319
